FAERS Safety Report 26082998 (Version 1)
Quarter: 2025Q4

REPORT INFORMATION
  Report Type: Spontaneous
  Country: US (occurrence: None)
  Receive Date: 20251124
  Receipt Date: 20251124
  Transmission Date: 20260117
  Serious: Yes (Life-Threatening)
  Sender: FDA-CTU
  Company Number: None

PATIENT
  Age: 82 Year
  Sex: Male

DRUGS (1)
  1. HEPARIN SODIUM AND DEXTROSE [Suspect]
     Active Substance: HEPARIN SODIUM
     Indication: Deep vein thrombosis
     Dosage: OTHER FREQUENCY : SLIDING SCALE?
     Route: 042
     Dates: start: 20250308, end: 20250315

REACTIONS (4)
  - Gastrointestinal haemorrhage [None]
  - Retroperitoneal haemorrhage [None]
  - Shock haemorrhagic [None]
  - Duodenal ulcer [None]

NARRATIVE: CASE EVENT DATE: 20250311
